FAERS Safety Report 4578072-3 (Version None)
Quarter: 2005Q1

REPORT INFORMATION
  Report Type: 
  Country: None (occurrence: None)
  Receive Date: 20050209
  Receipt Date: 20050121
  Transmission Date: 20050727
  Serious: Yes (Hospitalization)
  Sender: FDA-Public Use
  Company Number: EWC050142375

PATIENT
  Age: 50 Year
  Sex: Female
  Weight: 90 kg

DRUGS (3)
  1. RALOXIFENE HCL [Suspect]
     Dosage: 60 MG/1 DAY
     Dates: start: 20040206
  2. ENALAPRIL [Concomitant]
  3. HORMONE REPLACEMENT THERAPY [Concomitant]

REACTIONS (2)
  - POSTMENOPAUSAL HAEMORRHAGE [None]
  - SARCOMA UTERUS [None]
